FAERS Safety Report 22143763 (Version 2)
Quarter: 2023Q1

REPORT INFORMATION
  Report Type: Spontaneous
  Country: IL (occurrence: IL)
  Receive Date: 20230327
  Receipt Date: 20230331
  Transmission Date: 20230417
  Serious: Yes (Death, Other)
  Sender: FDA-Public Use
  Company Number: IL-BoehringerIngelheim-2023-BI-227398

PATIENT
  Age: 80 Year
  Sex: Female
  Weight: 60 kg

DRUGS (1)
  1. JARDIANCE [Suspect]
     Active Substance: EMPAGLIFLOZIN
     Indication: Diabetes mellitus
     Dosage: TOOK JARDIANCE FOR ABOUT A WEEK
     Dates: start: 20230227, end: 20230305

REACTIONS (3)
  - Emphysematous cystitis [Fatal]
  - Sepsis [Fatal]
  - Mechanical ventilation [Fatal]

NARRATIVE: CASE EVENT DATE: 20230305
